FAERS Safety Report 5866958-9 (Version None)
Quarter: 2008Q3

REPORT INFORMATION
  Report Type: 
  Country: None (occurrence: None)
  Receive Date: 20080902
  Receipt Date: 20080828
  Transmission Date: 20090109
  Serious: Yes (Other)
  Sender: FDA-Public Use
  Company Number: B0534530A

PATIENT
  Age: 52 Year
  Sex: Female

DRUGS (2)
  1. NIQUITIN 2MG [Suspect]
     Route: 002
     Dates: start: 20070201
  2. NIQUITIN PATCH [Suspect]
     Route: 062
     Dates: start: 20070301, end: 20070301

REACTIONS (2)
  - DEPENDENCE [None]
  - WEIGHT INCREASED [None]
